FAERS Safety Report 7169784-6 (Version None)
Quarter: 2010Q4

REPORT INFORMATION
  Report Type: 
  Country: None (occurrence: None)
  Receive Date: 20101206
  Receipt Date: 20101122
  Transmission Date: 20110411
  Serious: Yes (Hospitalization)
  Sender: FDA-Public Use
  Company Number: DSA_44427_2010

PATIENT
  Age: 86 Year
  Sex: Female

DRUGS (5)
  1. MONO-TILDIEM (MONO-TILDIEM-DILTIAZEM HYDROCHLORIDE) (300 MG, 120 MG) [Suspect]
     Indication: PRODUCT USED FOR UNKNOWN INDICATION
     Dosage: 300 MG QD ORAL, 120 MG QD ORAL
     Route: 048
     Dates: end: 20100721
  2. MONO-TILDIEM (MONO-TILDIEM-DILTIAZEM HYDROCHLORIDE) (300 MG, 120 MG) [Suspect]
     Indication: PRODUCT USED FOR UNKNOWN INDICATION
     Dosage: 300 MG QD ORAL, 120 MG QD ORAL
     Route: 048
     Dates: start: 20100722
  3. HYTACAND (HYTACAND - CANDESARTAN CILEXETIL + HYDROCHLOROTHIAZIDE) 8 MG [Suspect]
     Indication: PRODUCT USED FOR UNKNOWN INDICATION
     Dosage: 8 MG QD ORAL
     Route: 048
     Dates: start: 20100401, end: 20100722
  4. VASTAREL [Concomitant]
  5. OGASTORO [Concomitant]

REACTIONS (6)
  - ATRIOVENTRICULAR BLOCK [None]
  - CONFUSIONAL STATE [None]
  - ESCHERICHIA URINARY TRACT INFECTION [None]
  - FALL [None]
  - HEAD INJURY [None]
  - ORTHOSTATIC HYPOTENSION [None]
